FAERS Safety Report 11117284 (Version 2)
Quarter: 2015Q3

REPORT INFORMATION
  Report Type: Spontaneous
  Country: US (occurrence: US)
  Receive Date: 20150515
  Receipt Date: 20150914
  Transmission Date: 20151125
  Serious: Yes (Hospitalization, Other)
  Sender: FDA-Public Use
  Company Number: US-GILEAD-2015-0152944

PATIENT
  Age: 65 Year
  Sex: Male

DRUGS (12)
  1. CIPROFLOXACIN. [Concomitant]
     Active Substance: CIPROFLOXACIN
     Indication: PERITONITIS BACTERIAL
  2. RIFAXIMIN [Concomitant]
     Active Substance: RIFAXIMIN
  3. LANTUS [Concomitant]
     Active Substance: INSULIN GLARGINE
  4. LACTULOSE. [Concomitant]
     Active Substance: LACTULOSE
  5. LOVENOX [Concomitant]
     Active Substance: ENOXAPARIN SODIUM
  6. LOPRESSOR [Concomitant]
     Active Substance: METOPROLOL TARTRATE
  7. PROTONIX [Concomitant]
     Active Substance: PANTOPRAZOLE SODIUM
  8. ALDACTONE [Concomitant]
     Active Substance: SPIRONOLACTONE
     Indication: ASCITES
  9. HARVONI [Suspect]
     Active Substance: LEDIPASVIR\SOFOSBUVIR
     Indication: HEPATITIS C
     Dosage: 1 DF, QD
     Route: 048
     Dates: start: 20141104, end: 20150421
  10. HUMALOG [Concomitant]
     Active Substance: INSULIN LISPRO
     Indication: DIABETES MELLITUS
  11. LASIX [Concomitant]
     Active Substance: FUROSEMIDE
     Indication: ASCITES
  12. LORATADINE. [Concomitant]
     Active Substance: LORATADINE

REACTIONS (13)
  - Anaemia [Unknown]
  - Urine output decreased [Unknown]
  - Fatigue [Unknown]
  - Weight decreased [Unknown]
  - Ascites [Unknown]
  - Hepatic cirrhosis [Unknown]
  - Insomnia [Unknown]
  - Acute kidney injury [Unknown]
  - Hyperkalaemia [Recovered/Resolved]
  - Hepatic encephalopathy [Unknown]
  - Thrombocytopenia [Unknown]
  - Decreased appetite [Unknown]
  - Hyperglycaemia [Recovered/Resolved]

NARRATIVE: CASE EVENT DATE: 201504
